FAERS Safety Report 19261787 (Version 3)
Quarter: 2021Q2

REPORT INFORMATION
  Report Type: Spontaneous
  Country: US (occurrence: US)
  Receive Date: 20210515
  Receipt Date: 20210618
  Transmission Date: 20210717
  Serious: Yes (Death, Hospitalization, Other)
  Sender: FDA-Public Use
  Company Number: US-TEVA-2021-US-1911668

PATIENT
  Age: 62 Year
  Sex: Female
  Weight: 106.59 kg

DRUGS (36)
  1. VALSARTAN W/HYDROCHLOROTHIAZIDE?TEVA [Suspect]
     Active Substance: HYDROCHLOROTHIAZIDE\VALSARTAN
     Indication: HYPERTENSION
     Dosage: DOSE 80?12.5MG
     Route: 048
     Dates: start: 20150503, end: 20150920
  2. VALSARTAN /HYDROCHLOROTHIAZIDE?ALEMBIC [Suspect]
     Active Substance: HYDROCHLOROTHIAZIDE\VALSARTAN
     Dosage: DOSE: 80?12.5MG
     Route: 048
     Dates: start: 201801
  3. VALSARTAN /HYDROCHLOROTHIAZIDE?ALEMBIC [Suspect]
     Active Substance: HYDROCHLOROTHIAZIDE\VALSARTAN
     Dosage: DOSE: 80?12.5MG
     Route: 048
     Dates: start: 201804
  4. VALSARTAN /HYDROCHLOROTHIAZIDE?ALEMBIC [Suspect]
     Active Substance: HYDROCHLOROTHIAZIDE\VALSARTAN
     Dosage: DOSE: 80?12.5MG
     Route: 048
     Dates: start: 201807
  5. FENTANYL. [Concomitant]
     Active Substance: FENTANYL
     Dosage: AT DOSE 50MCG, 75MCG PRN
     Route: 065
     Dates: start: 20110204, end: 20160608
  6. AMLODIPINE BESYLATE. [Concomitant]
     Active Substance: AMLODIPINE BESYLATE
     Indication: HYPERTENSION
     Dosage: DOSE 5MG; 1 TAB QD
     Route: 065
     Dates: start: 20120804, end: 20190401
  7. INSULIN [Concomitant]
     Active Substance: INSULIN NOS
     Route: 065
  8. MORPHINE SULFATE ER [Concomitant]
     Active Substance: MORPHINE SULFATE
     Indication: PAIN
     Dosage: 15MG, 30MG, 60 MG; 2TABS QD
     Route: 065
     Dates: start: 20111115, end: 20180811
  9. PREDNISONE. [Concomitant]
     Active Substance: PREDNISONE
     Indication: INFLAMMATION
     Dosage: 10MG, 20MG 1TAB QD
     Dates: start: 20111021, end: 20180715
  10. VALSARTAN /HYDROCHLOROTHIAZIDE?ALEMBIC [Suspect]
     Active Substance: HYDROCHLOROTHIAZIDE\VALSARTAN
     Indication: HYPERTENSION
     Dosage: DOSE: 80?12.5MG
     Route: 048
     Dates: start: 201710
  11. TOLTERODINE TARTRATE ER [Concomitant]
     Indication: HYPERTONIC BLADDER
     Dosage: 4 MILLIGRAM DAILY; 4MG 1 TAB QD
     Dates: start: 20140212, end: 20160611
  12. VALSARTAN W/HYDROCHLOROTHIAZIDE?TEVA [Suspect]
     Active Substance: HYDROCHLOROTHIAZIDE\VALSARTAN
     Dosage: DOSE: 80?12.5MG
     Route: 048
     Dates: start: 201603
  13. VALSARTAN W/HYDROCHLOROTHIAZIDE?TEVA [Suspect]
     Active Substance: HYDROCHLOROTHIAZIDE\VALSARTAN
     Dosage: DOSE: 80?12.5MG
     Route: 048
     Dates: start: 201609
  14. ALBUTEROL. [Concomitant]
     Active Substance: ALBUTEROL
     Route: 065
  15. LANTUS [Concomitant]
     Active Substance: INSULIN GLARGINE
     Indication: DIABETES MELLITUS
     Dosage: DOSE 100ML
     Route: 065
     Dates: start: 20110706, end: 20190130
  16. HUMALOG [Concomitant]
     Active Substance: INSULIN LISPRO
     Indication: DIABETES MELLITUS
     Route: 065
  17. VALSARTAN W/HYDROCHLOROTHIAZIDE?TEVA [Suspect]
     Active Substance: HYDROCHLOROTHIAZIDE\VALSARTAN
     Dosage: DOSE: 80?12.5MG
     Route: 048
     Dates: start: 201701
  18. VALSARTAN W/HYDROCHLOROTHIAZIDE?TEVA [Suspect]
     Active Substance: HYDROCHLOROTHIAZIDE\VALSARTAN
     Dosage: DOSE: 80?12.5MG
     Route: 048
     Dates: start: 201704
  19. FENTANYL. [Concomitant]
     Active Substance: FENTANYL
     Indication: PAIN
     Dosage: PRN
     Route: 065
     Dates: start: 20100208, end: 20110203
  20. OXYCODONE? ACETAMINOPHEN [Concomitant]
     Active Substance: ACETAMINOPHEN\OXYCODONE HYDROCHLORIDE
     Dosage: DOSE 5MG?325MG,1 TAB PRN
     Route: 065
     Dates: start: 20110204, end: 20190227
  21. METRONIDAZOLE. [Concomitant]
     Active Substance: METRONIDAZOLE
     Route: 065
  22. VALSARTAN W/HYDROCHLOROTHIAZIDE?TEVA [Suspect]
     Active Substance: HYDROCHLOROTHIAZIDE\VALSARTAN
     Dosage: DOSE: 80?12.5MG
     Route: 048
     Dates: start: 20151017, end: 201510
  23. VALSARTAN /HYDROCHLOROTHIAZIDE?ALEMBIC [Suspect]
     Active Substance: HYDROCHLOROTHIAZIDE\VALSARTAN
     Dosage: DOSE: 80?12.5MG
     Route: 048
     Dates: start: 201810
  24. OXYCODONE? ACETAMINOPHEN [Concomitant]
     Active Substance: ACETAMINOPHEN\OXYCODONE HYDROCHLORIDE
     Indication: PAIN
     Dosage: DOSE 5MG?325MG,1 TAB PRN
     Route: 065
     Dates: start: 20100317, end: 20101229
  25. GABAPENTIN. [Concomitant]
     Active Substance: GABAPENTIN
     Indication: PAIN
     Dosage: 600 MILLIGRAM DAILY;
     Route: 065
     Dates: start: 20180606, end: 20190219
  26. OMEPRAZOLE. [Concomitant]
     Active Substance: OMEPRAZOLE
     Indication: GASTROOESOPHAGEAL REFLUX DISEASE
     Dosage: 20MG, 40MG QD
     Route: 065
     Dates: start: 20110128, end: 20190312
  27. SERTRALINE HCL [Concomitant]
     Active Substance: SERTRALINE HYDROCHLORIDE
     Indication: DEPRESSION
     Dosage: 50 MG, 100MG; 1?1.5 TABS QD
     Route: 065
     Dates: start: 20110311, end: 20160911
  28. DIPHENOXYLATE?ATROPINE [Concomitant]
     Active Substance: ATROPINE\DIPHENOXYLATE
     Indication: DIARRHOEA
     Dosage: 2.5MG?0.025MG
     Route: 065
     Dates: start: 20120804, end: 20190201
  29. VALSARTAN W/HYDROCHLOROTHIAZIDE?TEVA [Suspect]
     Active Substance: HYDROCHLOROTHIAZIDE\VALSARTAN
     Dosage: DOSE: 80?12.5MG
     Route: 048
     Dates: start: 201606
  30. VALSARTAN /HYDROCHLOROTHIAZIDE?AUROBINDO [Suspect]
     Active Substance: HYDROCHLOROTHIAZIDE\VALSARTAN
     Indication: HYPERTENSION
     Dosage: DOSE: 80?12.5MG
     Route: 048
     Dates: start: 20181230, end: 20190312
  31. VALSARTAN W/HYDROCHLOROTHIAZIDE?TEVA [Suspect]
     Active Substance: HYDROCHLOROTHIAZIDE\VALSARTAN
     Dosage: DOSE: 80?12.5MG
     Route: 048
     Dates: start: 201601
  32. PIOGLITAZONE HCL [Concomitant]
     Active Substance: PIOGLITAZONE
     Indication: DIABETES MELLITUS
     Dosage: 30 MILLIGRAM DAILY;
     Route: 065
     Dates: start: 20121004, end: 20190312
  33. VALSARTAN W/HYDROCHLOROTHIAZIDE?TEVA [Suspect]
     Active Substance: HYDROCHLOROTHIAZIDE\VALSARTAN
     Dosage: DOSE: 80?12.5MG
     Route: 048
     Dates: start: 201707
  34. IMITREX [Concomitant]
     Active Substance: SUMATRIPTAN SUCCINATE
     Indication: HEADACHE
     Route: 065
  35. ATORVASTATIN CALCIUM. [Concomitant]
     Active Substance: ATORVASTATIN CALCIUM
     Indication: BLOOD CHOLESTEROL INCREASED
     Dosage: 20 MG, 40 MG QD
     Route: 065
     Dates: start: 20121108, end: 20190312
  36. ASPIRIN. [Concomitant]
     Active Substance: ASPIRIN
     Route: 065

REACTIONS (4)
  - Cerebrovascular accident [Fatal]
  - Adenosquamous cell lung cancer [Unknown]
  - Rectal cancer [Unknown]
  - Acute respiratory failure [Fatal]
